FAERS Safety Report 4832563-6 (Version None)
Quarter: 2005Q4

REPORT INFORMATION
  Report Type: 
  Country: None (occurrence: None)
  Receive Date: 20051121
  Receipt Date: 20051109
  Transmission Date: 20060501
  Serious: Yes (Death)
  Sender: FDA-Public Use
  Company Number: AT-BRISTOL-MYERS SQUIBB COMPANY-13174255

PATIENT
  Age: 69 Year
  Sex: Male
  Weight: 86 kg

DRUGS (3)
  1. MAXIPIME [Suspect]
     Indication: RESPIRATORY TRACT INFECTION
     Dates: start: 20050101, end: 20050105
  2. MAXIPIME [Suspect]
     Indication: SEPSIS
     Dates: start: 20050101, end: 20050105
  3. MAXIPIME [Suspect]
     Indication: FEBRILE NEUTROPENIA
     Dates: start: 20050101, end: 20050105

REACTIONS (1)
  - DEATH [None]
